FAERS Safety Report 19702485 (Version 1)
Quarter: 2021Q3

REPORT INFORMATION
  Report Type: Spontaneous
  Country: US (occurrence: US)
  Receive Date: 20210815
  Receipt Date: 20210815
  Transmission Date: 20211014
  Serious: No
  Sender: FDA-Public Use
  Company Number: US-SA-2021SA265737

PATIENT
  Age: 13 Year
  Sex: Female

DRUGS (19)
  1. ZYRTEC [Concomitant]
     Active Substance: CETIRIZINE HYDROCHLORIDE
     Dosage: UNK
  2. CLARITINE [Concomitant]
     Active Substance: LORATADINE
     Dosage: UNK
  3. ALEVE [Concomitant]
     Active Substance: NAPROXEN SODIUM
     Dosage: UNK
  4. SINGULAIR [Concomitant]
     Active Substance: MONTELUKAST SODIUM
     Dosage: UNK
  5. FLUTICASONE. [Concomitant]
     Active Substance: FLUTICASONE
     Dosage: UNK
  6. TERBINAFINE. [Concomitant]
     Active Substance: TERBINAFINE
     Dosage: UNK
  7. MULTIVITAMINS [VITAMINS NOS] [Concomitant]
     Active Substance: VITAMINS
     Dosage: UNK
  8. HEPARIN SODIUM CHLORIDE [Concomitant]
     Active Substance: HEPARIN SODIUM\SODIUM CHLORIDE
     Dosage: UNK
  9. CATHFLO ACTIVASE [Concomitant]
     Active Substance: ALTEPLASE
     Dosage: UNK
  10. IBUPROFEN. [Concomitant]
     Active Substance: IBUPROFEN
     Dosage: UNK
  11. EPINEPHRINE. [Concomitant]
     Active Substance: EPINEPHRINE
     Dosage: UNK
  12. SOLU?MEDROL [Concomitant]
     Active Substance: METHYLPREDNISOLONE SODIUM SUCCINATE
     Dosage: UNK
  13. UNISOM SLEEPMELTS [Concomitant]
     Active Substance: DIPHENHYDRAMINE HYDROCHLORIDE
     Dosage: UNK
  14. ALBUTEROL [SALBUTAMOL] [Concomitant]
     Active Substance: ALBUTEROL
     Dosage: UNK
  15. STERILE WATER [Concomitant]
     Active Substance: WATER
     Dosage: UNK
  16. ALDURAZYME [Suspect]
     Active Substance: LARONIDASE
     Indication: MUCOPOLYSACCHARIDOSIS
     Dosage: 37.7 MG, QW
     Route: 042
     Dates: start: 20210528
  17. LIDOCAINE;PRILOCAINE [Concomitant]
     Dosage: UNK
  18. SYMBICORT [Concomitant]
     Active Substance: BUDESONIDE\FORMOTEROL FUMARATE DIHYDRATE
     Dosage: UNK
  19. LMX4 [Concomitant]
     Active Substance: LIDOCAINE
     Dosage: UNK

REACTIONS (1)
  - Nail operation [Unknown]

NARRATIVE: CASE EVENT DATE: 2021
